FAERS Safety Report 8403815 (Version 5)
Quarter: 2013Q3

REPORT INFORMATION
  Report Type: Report from Study
  Country: US (occurrence: US)
  Receive Date: 20120213
  Receipt Date: 20130919
  Transmission Date: 20140515
  Serious: Yes (Hospitalization, Other)
  Sender: FDA-Public Use
  Company Number: US-ELI_LILLY_AND_COMPANY-US201111006050

PATIENT
  Age: 84 Year
  Sex: Female
  Weight: 71.2 kg

DRUGS (25)
  1. TERIPARATIDE [Suspect]
     Indication: OSTEOPOROSIS
     Dosage: 20 UG, EACH MORNING
     Route: 058
  2. TERIPARATIDE [Suspect]
     Dosage: 20 UG, EACH EVENING
     Route: 058
  3. TERIPARATIDE [Suspect]
     Dosage: 20 UG, QD
     Route: 058
  4. TERIPARATIDE [Suspect]
     Dosage: UNK, QD
     Dates: start: 20111028
  5. MIRALAX [Concomitant]
     Indication: PRODUCT USED FOR UNKNOWN INDICATION
  6. PROVENTIL                               /USA/ [Concomitant]
     Indication: PRODUCT USED FOR UNKNOWN INDICATION
  7. IRON [Concomitant]
     Indication: PRODUCT USED FOR UNKNOWN INDICATION
  8. COUMADIN [Concomitant]
     Indication: THROMBOSIS PROPHYLAXIS
  9. NORVASC [Concomitant]
     Indication: PRODUCT USED FOR UNKNOWN INDICATION
  10. TENORMIN [Concomitant]
     Indication: PRODUCT USED FOR UNKNOWN INDICATION
  11. DIOVAN [Concomitant]
     Indication: PRODUCT USED FOR UNKNOWN INDICATION
  12. LORTAB [Concomitant]
     Indication: PRODUCT USED FOR UNKNOWN INDICATION
  13. CALCIUM CARBONATE [Concomitant]
     Indication: PRODUCT USED FOR UNKNOWN INDICATION
  14. PULMICORT [Concomitant]
     Indication: PRODUCT USED FOR UNKNOWN INDICATION
  15. DULCOLAX [Concomitant]
     Indication: PRODUCT USED FOR UNKNOWN INDICATION
     Dosage: UNK, PRN
  16. PRILOSEC [Concomitant]
     Indication: PRODUCT USED FOR UNKNOWN INDICATION
  17. SENOKOT [Concomitant]
     Indication: PRODUCT USED FOR UNKNOWN INDICATION
     Dosage: UNK, PRN
  18. VITAMIN D [Concomitant]
     Indication: PRODUCT USED FOR UNKNOWN INDICATION
  19. CYANOCOBALAMIN [Concomitant]
     Indication: PRODUCT USED FOR UNKNOWN INDICATION
  20. ALBUMIN [Concomitant]
     Indication: PRODUCT USED FOR UNKNOWN INDICATION
  21. LASIX [Concomitant]
     Indication: PRODUCT USED FOR UNKNOWN INDICATION
     Dosage: 20 MG, UNK
  22. ASPIRIN [Concomitant]
     Indication: PRODUCT USED FOR UNKNOWN INDICATION
  23. MICARDIS [Concomitant]
     Indication: PRODUCT USED FOR UNKNOWN INDICATION
  24. LIDODERM [Concomitant]
     Indication: PRODUCT USED FOR UNKNOWN INDICATION
  25. ALBUTEROL [Concomitant]

REACTIONS (11)
  - Hip fracture [Unknown]
  - Femur fracture [Unknown]
  - Fall [Unknown]
  - Fall [Unknown]
  - Dysphonia [Unknown]
  - Headache [Recovered/Resolved]
  - Nausea [Recovered/Resolved]
  - Hyponatraemia [Unknown]
  - Anaemia [Unknown]
  - Joint injury [Unknown]
  - Lower limb fracture [Unknown]
